FAERS Safety Report 17926054 (Version 4)
Quarter: 2020Q3

REPORT INFORMATION
  Report Type: Spontaneous
  Country: BY (occurrence: BY)
  Receive Date: 20200622
  Receipt Date: 20200921
  Transmission Date: 20201103
  Serious: Yes (Hospitalization, Other)
  Sender: FDA-Public Use
  Company Number: BY-JNJFOC-20200618113

PATIENT
  Age: 56 Year
  Sex: Male
  Weight: 52 kg

DRUGS (29)
  1. OMEPRAZOLE. [Concomitant]
     Active Substance: OMEPRAZOLE
     Route: 048
     Dates: start: 20190123, end: 20200128
  2. CEFTRIAXONE. [Concomitant]
     Active Substance: CEFTRIAXONE
     Route: 042
     Dates: start: 20200103, end: 20200103
  3. GLUCOSE [Concomitant]
     Active Substance: DEXTROSE
     Route: 042
     Dates: start: 20200108, end: 20200110
  4. LINEZOLID. [Suspect]
     Active Substance: LINEZOLID
     Indication: TUBERCULOSIS
     Route: 048
     Dates: start: 20181109, end: 20200104
  5. INDAPAMID [Concomitant]
     Active Substance: INDAPAMIDE
     Dosage: 1?0?0
     Route: 048
     Dates: start: 20200113, end: 20200213
  6. ALUMINIUM PHOSPHATE [Concomitant]
     Active Substance: ALUMINUM PHOSPHATE
     Route: 048
     Dates: start: 20191111
  7. CLOFAZIMINE [Suspect]
     Active Substance: CLOFAZIMINE
     Route: 048
     Dates: start: 20200109, end: 20200626
  8. OMEPRAZOLE. [Concomitant]
     Active Substance: OMEPRAZOLE
     Route: 048
     Dates: start: 20191224, end: 20200123
  9. PROTAMINE [Concomitant]
     Active Substance: PROTAMINE
     Dosage: 1 EFFECTIVE DOSE?4?0?6 ED
     Route: 058
     Dates: start: 20191224
  10. INSULIN [Concomitant]
     Active Substance: INSULIN NOS
     Dosage: 1 EFFECTIVE DOSE?4?4?6 EFFECTIVE DOSES
     Route: 058
     Dates: start: 20191108, end: 20191224
  11. MOXONIDINE [Concomitant]
     Active Substance: MOXONIDINE
     Dosage: 0?1?0
     Route: 048
     Dates: start: 20200213
  12. CLARITHROMYCIN. [Interacting]
     Active Substance: CLARITHROMYCIN
     Route: 042
     Dates: start: 20200103, end: 20200110
  13. PROTAMINE [Concomitant]
     Active Substance: PROTAMINE
     Dosage: 1 EFFECTIVE DOSE?0?0?4 ED
     Route: 058
     Dates: start: 20191108, end: 20191224
  14. SIRTURO [Suspect]
     Active Substance: BEDAQUILINE FUMARATE
     Indication: TUBERCULOSIS
     Route: 048
     Dates: start: 20181109, end: 20200104
  15. MOXIFLOXACIN. [Suspect]
     Active Substance: MOXIFLOXACIN
     Indication: TUBERCULOSIS
     Route: 048
     Dates: start: 20181109, end: 20200104
  16. CLOFAZIMINE [Suspect]
     Active Substance: CLOFAZIMINE
     Indication: TUBERCULOSIS
     Route: 048
     Dates: start: 20181109, end: 20200104
  17. PYRIDOXINE [Concomitant]
     Active Substance: PYRIDOXINE
     Route: 048
     Dates: start: 20191125
  18. LINEZOLID. [Suspect]
     Active Substance: LINEZOLID
     Route: 048
     Dates: start: 20200109, end: 20200626
  19. INSULIN [Concomitant]
     Active Substance: INSULIN NOS
     Dosage: 1 EFFECTIVE DOSE?4?4?4 EFFECTIVE DOSES
     Route: 058
     Dates: start: 20191224
  20. INSULIN [Concomitant]
     Active Substance: INSULIN NOS
     Dosage: 6 EFFECTIVE DOSES
     Route: 042
     Dates: start: 20200108, end: 20200110
  21. KETOROLAC [Concomitant]
     Active Substance: KETOROLAC TROMETHAMINE
     Route: 030
     Dates: start: 20191227, end: 20200110
  22. SIRTURO [Suspect]
     Active Substance: BEDAQUILINE FUMARATE
     Route: 048
     Dates: start: 20200123, end: 20200626
  23. AMBROXOL [Concomitant]
     Active Substance: AMBROXOL
     Route: 048
     Dates: start: 20191104, end: 20200408
  24. PERINDOPRIL [Concomitant]
     Active Substance: PERINDOPRIL
     Route: 048
     Dates: start: 20200111, end: 20200123
  25. URSO [Concomitant]
     Active Substance: URSODIOL
     Route: 048
     Dates: start: 20200214
  26. GLYCINE. [Concomitant]
     Active Substance: GLYCINE
     Dosage: 1?1?1
     Route: 048
     Dates: start: 20200214
  27. MOXIFLOXACIN. [Suspect]
     Active Substance: MOXIFLOXACIN
     Route: 048
     Dates: start: 20200109, end: 20200626
  28. LORATADINE. [Concomitant]
     Active Substance: LORATADINE
     Route: 048
     Dates: start: 20191127, end: 20200108
  29. RAMIPRIL. [Concomitant]
     Active Substance: RAMIPRIL
     Route: 048
     Dates: start: 20200123, end: 20200213

REACTIONS (7)
  - Lung neoplasm malignant [Recovered/Resolved with Sequelae]
  - Blood albumin decreased [Unknown]
  - Blood calcium decreased [Unknown]
  - Creatinine renal clearance decreased [Unknown]
  - Blood potassium decreased [Unknown]
  - Drug interaction [Unknown]
  - Electrocardiogram QT prolonged [Recovered/Resolved]

NARRATIVE: CASE EVENT DATE: 20191104
